FAERS Safety Report 5166107-9 (Version None)
Quarter: 2006Q4

REPORT INFORMATION
  Report Type: 
  Country: None (occurrence: None)
  Receive Date: 20061129
  Receipt Date: 20061114
  Transmission Date: 20070319
  Serious: Yes (Other)
  Sender: FDA-Public Use
  Company Number: SPV1-2006-00399

PATIENT
  Age: 7 Year
  Sex: Male

DRUGS (3)
  1. DAYTRANA [Suspect]
     Dosage: 15 MG, TRANSDERMAL
     Route: 062
     Dates: start: 20060803
  2. NEXIUM   /01479302/(ESOMEPRAZOLE MAGNESIUM) [Concomitant]
  3. TAGAMET [Concomitant]

REACTIONS (3)
  - APPLICATION SITE ERYTHEMA [None]
  - APPLICATION SITE PAIN [None]
  - URTICARIA GENERALISED [None]
